FAERS Safety Report 20090502 (Version 1)
Quarter: 2021Q4

REPORT INFORMATION
  Report Type: Report from Study
  Country: BY (occurrence: BY)
  Receive Date: 20211119
  Receipt Date: 20211119
  Transmission Date: 20220303
  Serious: Yes (Hospitalization)
  Sender: FDA-Public Use
  Company Number: BY-CELGENE-BLR-20211101783

PATIENT
  Sex: Male

DRUGS (14)
  1. OZANIMOD [Suspect]
     Active Substance: OZANIMOD
     Indication: Relapsing multiple sclerosis
     Route: 048
     Dates: start: 20161104, end: 20211017
  2. Latex condom [Concomitant]
     Indication: Contraception
     Dosage: 1 (UNITS)
     Route: 061
     Dates: start: 20210806
  3. CITRAMON [Concomitant]
     Active Substance: ACETAMINOPHEN\ASPIRIN\CAFFEINE
     Indication: Headache
     Dosage: 1 (TABLET DOSING UNIT)
     Route: 048
     Dates: start: 20210310
  4. CITRAMON [Concomitant]
     Active Substance: ACETAMINOPHEN\ASPIRIN\CAFFEINE
     Indication: Tension headache
     Dosage: 1 (TABLET DOSING UNIT)
     Route: 048
     Dates: start: 20210310
  5. Septolete [Concomitant]
     Indication: Nasopharyngitis
     Dosage: 1 (TABLET DOSING UNIT)
     Route: 048
  6. AMOXICILLIN [Concomitant]
     Active Substance: AMOXICILLIN
     Indication: Nasopharyngitis
     Dosage: 500 MILLIGRAM
     Route: 048
  7. ASCORBIC ACID [Concomitant]
     Active Substance: ASCORBIC ACID
     Indication: Nasopharyngitis
     Dosage: 1 (TABLET DOSING UNIT)
     Route: 048
  8. NITROFURAL [Concomitant]
     Indication: Pharyngitis
     Dosage: 1 OTHER
     Route: 048
  9. FARINGOSEPT [Concomitant]
     Indication: Pharyngitis
     Dosage: 1 (SPRAY DOSING UNIT)
     Route: 048
  10. ARTRA [Concomitant]
     Indication: Osteoarthritis
     Dosage: 1 (TABLET DOSING UNIT)
     Route: 048
  11. VALACYCLOVIR HYDROCHLORIDE [Concomitant]
     Active Substance: VALACYCLOVIR HYDROCHLORIDE
     Indication: Ciliary ganglionitis
     Dosage: 1000 MILLIGRAM
     Route: 048
  12. CYTOFLAVIN [Concomitant]
     Indication: Ciliary ganglionitis
     Dosage: 1 (TABLET DOSING UNIT)
     Route: 048
  13. LACTOBACILLUS ACIDOPHILUS [Concomitant]
     Active Substance: LACTOBACILLUS ACIDOPHILUS
     Indication: Diarrhoea
     Dosage: 1 (CAPSULE DOSING UNIT)
     Route: 048
  14. RIMANTADINE [Concomitant]
     Active Substance: RIMANTADINE HYDROCHLORIDE
     Indication: Nasopharyngitis
     Dosage: 1000 MILLIGRAM
     Route: 048

REACTIONS (1)
  - COVID-19 pneumonia [Recovered/Resolved]

NARRATIVE: CASE EVENT DATE: 20211018
